FAERS Safety Report 13739202 (Version 2)
Quarter: 2018Q2

REPORT INFORMATION
  Report Type: Report from Study
  Country: US (occurrence: US)
  Receive Date: 20170710
  Receipt Date: 20180627
  Transmission Date: 20180711
  Serious: No
  Sender: FDA-Public Use
  Company Number: US-SAOL THERAPEUTICS-2017SAO00091

PATIENT
  Age: 79 Year
  Sex: Female

DRUGS (30)
  1. DILAUDID [Suspect]
     Active Substance: HYDROMORPHONE HYDROCHLORIDE
     Dosage: 0.7509 MG, \DAY
     Route: 037
     Dates: end: 20171031
  2. BUPIVACAINE. [Suspect]
     Active Substance: BUPIVACAINE
     Dosage: 8.085 MG, \DAY - MAX
     Route: 037
     Dates: start: 20171120, end: 20180405
  3. BACLOFEN. [Suspect]
     Active Substance: BACLOFEN
     Dosage: 56.32 ?G, \DAY
     Route: 037
     Dates: end: 20171031
  4. BACLOFEN. [Suspect]
     Active Substance: BACLOFEN
     Dosage: 56.32 ?G, \DAY
     Route: 037
     Dates: start: 20171120, end: 20180405
  5. BACLOFEN. [Suspect]
     Active Substance: BACLOFEN
     Dosage: 145.53 ?G, \DAY - MAX
     Route: 037
     Dates: start: 20171120, end: 20180405
  6. BACLOFEN. [Suspect]
     Active Substance: BACLOFEN
     Dosage: 67.55 ?G, \DAY
     Route: 037
     Dates: start: 20180405
  7. DILAUDID [Suspect]
     Active Substance: HYDROMORPHONE HYDROCHLORIDE
     Dosage: 2.242 MG, \DAY
     Route: 037
     Dates: start: 20161102
  8. DILAUDID [Suspect]
     Active Substance: HYDROMORPHONE HYDROCHLORIDE
     Dosage: 1.9404 MG, \DAY - MAX
     Route: 037
     Dates: start: 20171120, end: 20180405
  9. DILAUDID [Suspect]
     Active Substance: HYDROMORPHONE HYDROCHLORIDE
     Dosage: 0.9006 MG, \DAY
     Route: 037
     Dates: start: 20180405
  10. DILAUDID [Suspect]
     Active Substance: HYDROMORPHONE HYDROCHLORIDE
     Dosage: 1.6131 MG, \DAY - MAX
     Route: 037
     Dates: start: 20180405
  11. BUPIVACAINE. [Suspect]
     Active Substance: BUPIVACAINE
     Dosage: 5.351 MG, \DAY - MAX
     Route: 037
     Dates: start: 20171031, end: 20171102
  12. BACLOFEN. [Suspect]
     Active Substance: BACLOFEN
     Dosage: 41.24 ?G, \DAY
     Route: 037
     Dates: start: 20161102
  13. BUPIVACAINE. [Suspect]
     Active Substance: BUPIVACAINE
     Dosage: 9.343 UNK, \DAY
     Route: 037
     Dates: start: 20161102
  14. BACLOFEN. [Suspect]
     Active Substance: BACLOFEN
     Dosage: 183.05 ?G, \DAY - MAX
     Route: 037
     Dates: end: 20171031
  15. DILAUDID [Suspect]
     Active Substance: HYDROMORPHONE HYDROCHLORIDE
     Dosage: 2.4407 MG, \DAY - MAX
     Route: 037
     Dates: end: 20171031
  16. BUPIVACAINE. [Suspect]
     Active Substance: BUPIVACAINE
     Dosage: 2.291 MG, \DAY
     Route: 037
     Dates: start: 20161102
  17. BUPIVACAINE. [Suspect]
     Active Substance: BUPIVACAINE
     Dosage: 3.129 MG, \DAY
     Route: 037
     Dates: start: 20171120, end: 20180405
  18. BUPIVACAINE. [Suspect]
     Active Substance: BUPIVACAINE
     Dosage: 3.753 MG, \DAY
     Route: 037
     Dates: start: 20180405
  19. BACLOFEN. [Suspect]
     Active Substance: BACLOFEN
     Dosage: 96.33 ?G, \DAY - MAX
     Route: 037
     Dates: start: 20171031, end: 20171102
  20. BUPIVACAINE. [Suspect]
     Active Substance: BUPIVACAINE
     Dosage: 10.170 MG, \DAY - MAX
     Route: 037
     Dates: end: 20171031
  21. BUPIVACAINE. [Suspect]
     Active Substance: BUPIVACAINE
     Dosage: 1.202 MG, \DAY
     Route: 037
     Dates: start: 20171031, end: 20171102
  22. BUPIVACAINE. [Suspect]
     Active Substance: BUPIVACAINE
     Dosage: 6.721 MG, \DAY - MAX
     Route: 037
     Dates: start: 20180405
  23. DILAUDID [Suspect]
     Active Substance: HYDROMORPHONE HYDROCHLORIDE
     Dosage: 0.2884 MG, \DAY
     Route: 037
     Dates: start: 20171031, end: 20171102
  24. BACLOFEN. [Suspect]
     Active Substance: BACLOFEN
     Dosage: 168.18 ?G, \DAY
     Route: 037
     Dates: start: 20161102
  25. BACLOFEN. [Suspect]
     Active Substance: BACLOFEN
     Dosage: 120.98 ?G, \DAY
     Route: 037
     Dates: start: 20180405
  26. DILAUDID [Suspect]
     Active Substance: HYDROMORPHONE HYDROCHLORIDE
     Dosage: 0.7509 MG, \DAY
     Route: 037
     Dates: start: 20171120, end: 20180405
  27. BUPIVACAINE. [Suspect]
     Active Substance: BUPIVACAINE
     Dosage: 3.129 MG, \DAY
     Route: 037
     Dates: end: 20171031
  28. BACLOFEN. [Suspect]
     Active Substance: BACLOFEN
     Dosage: 21.63 ?G, \DAY
     Route: 037
     Dates: start: 20171031, end: 20171102
  29. DILAUDID [Suspect]
     Active Substance: HYDROMORPHONE HYDROCHLORIDE
     Dosage: 0.549 MG, \DAY
     Route: 037
     Dates: start: 20161102
  30. DILAUDID [Suspect]
     Active Substance: HYDROMORPHONE HYDROCHLORIDE
     Dosage: 1.2843 MG, \DAY - MAX
     Route: 037
     Dates: start: 20171031, end: 20171102

REACTIONS (3)
  - Therapeutic response decreased [Recovered/Resolved]
  - Implant site pain [Not Recovered/Not Resolved]
  - Pain [Recovered/Resolved]

NARRATIVE: CASE EVENT DATE: 20171101
